FAERS Safety Report 22156779 (Version 2)
Quarter: 2023Q2

REPORT INFORMATION
  Report Type: Spontaneous
  Country: CN (occurrence: CN)
  Receive Date: 20230330
  Receipt Date: 20230503
  Transmission Date: 20230722
  Serious: Yes (Hospitalization, Other)
  Sender: FDA-Public Use
  Company Number: CN-PFIZER INC-PV202300057317

PATIENT
  Age: 64 Year
  Sex: Male

DRUGS (4)
  1. SOLU-MEDROL [Suspect]
     Active Substance: METHYLPREDNISOLONE SODIUM SUCCINATE
     Indication: Chemotherapy
     Dosage: 60 MG, 1X/DAY
     Route: 041
     Dates: start: 20230201, end: 20230206
  2. VINDESINE SULFATE [Suspect]
     Active Substance: VINDESINE SULFATE
     Indication: Chemotherapy
     Dosage: 3 MG, 1X/DAY
     Route: 041
     Dates: start: 20230203, end: 20230203
  3. BLINCYTO [Suspect]
     Active Substance: BLINATUMOMAB
     Indication: Chemotherapy
     Dosage: 9 UG, 1X/DAY (DAY 2-DAY 10)
     Route: 041
     Dates: start: 20230204, end: 20230212
  4. BLINCYTO [Suspect]
     Active Substance: BLINATUMOMAB
     Indication: Acute lymphocytic leukaemia
     Dosage: 28 UG, 1X/DAY (DAY 11-DAY 15)
     Route: 041
     Dates: start: 20230213, end: 20230217

REACTIONS (5)
  - Pyrexia [Recovering/Resolving]
  - Myelosuppression [Recovering/Resolving]
  - Temperature intolerance [Recovering/Resolving]
  - Chills [Recovering/Resolving]
  - Off label use [Unknown]

NARRATIVE: CASE EVENT DATE: 20230201
